FAERS Safety Report 14516115 (Version 3)
Quarter: 2019Q4

REPORT INFORMATION
  Report Type: Report from Study
  Country: US (occurrence: US)
  Receive Date: 20180211
  Receipt Date: 20191219
  Transmission Date: 20200122
  Serious: Yes (Death)
  Sender: FDA-Public Use
  Company Number: US-PUMA BIOTECHNOLOGY, LTD.-2017US017302

PATIENT

DRUGS (12)
  1. LOMOTIL [Concomitant]
     Active Substance: ATROPINE SULFATE\DIPHENOXYLATE HYDROCHLORIDE
     Indication: PRODUCT USED FOR UNKNOWN INDICATION
  2. NERLYNX [Suspect]
     Active Substance: NERATINIB
     Indication: BREAST CANCER FEMALE
     Dosage: 4 TABLETS, DAILY FOR 5 DAYS
     Route: 048
  3. XELODA [Concomitant]
     Active Substance: CAPECITABINE
     Indication: PRODUCT USED FOR UNKNOWN INDICATION
  4. WELLBUTRIN [Concomitant]
     Active Substance: BUPROPION HYDROCHLORIDE
     Indication: PRODUCT USED FOR UNKNOWN INDICATION
  5. NERLYNX [Suspect]
     Active Substance: NERATINIB
     Indication: BREAST CANCER FEMALE
     Dosage: 6 TABLETS, DAILY
     Route: 048
  6. NERLYNX [Suspect]
     Active Substance: NERATINIB
     Dosage: 6 TABLETS, DAILY
     Route: 048
     Dates: start: 20191011, end: 2019
  7. NERLYNX [Suspect]
     Active Substance: NERATINIB
     Indication: BREAST CANCER FEMALE
     Dosage: 2 TABLETS DAILY, FOR 2 DAYS
     Route: 048
  8. NERLYNX [Suspect]
     Active Substance: NERATINIB
     Dosage: UNK
     Route: 048
     Dates: start: 20190901, end: 2019
  9. SYNTHROID [Concomitant]
     Active Substance: LEVOTHYROXINE SODIUM
     Indication: PRODUCT USED FOR UNKNOWN INDICATION
  10. IBUPROFEN. [Concomitant]
     Active Substance: IBUPROFEN
     Indication: PRODUCT USED FOR UNKNOWN INDICATION
  11. ZOFRAN [Concomitant]
     Active Substance: ONDANSETRON HYDROCHLORIDE
     Indication: PRODUCT USED FOR UNKNOWN INDICATION
  12. DECADRON [Concomitant]
     Active Substance: DEXAMETHASONE
     Indication: PRODUCT USED FOR UNKNOWN INDICATION

REACTIONS (4)
  - Abdominal pain [Unknown]
  - Diarrhoea [Not Recovered/Not Resolved]
  - Death [Fatal]
  - Off label use [Unknown]

NARRATIVE: CASE EVENT DATE: 2019
